FAERS Safety Report 15028440 (Version 1)
Quarter: 2018Q2

REPORT INFORMATION
  Report Type: Spontaneous
  Country: US (occurrence: US)
  Receive Date: 20180619
  Receipt Date: 20180619
  Transmission Date: 20180711
  Serious: No
  Sender: FDA-Public Use
  Company Number: US-GLAXOSMITHKLINE-US2018107753

PATIENT
  Sex: Male

DRUGS (1)
  1. FLONASE SENSIMIST ALLERGY RELIEF [Suspect]
     Active Substance: FLUTICASONE FUROATE
     Indication: HYPERSENSITIVITY
     Dosage: UNK
     Dates: start: 20180601, end: 20180614

REACTIONS (4)
  - Headache [Recovering/Resolving]
  - Abdominal discomfort [Recovering/Resolving]
  - Overdose [Unknown]
  - Dizziness [Recovering/Resolving]

NARRATIVE: CASE EVENT DATE: 20180614
